FAERS Safety Report 18846345 (Version 1)
Quarter: 2021Q1

REPORT INFORMATION
  Report Type: Report from Study
  Country: US (occurrence: US)
  Receive Date: 20210203
  Receipt Date: 20210203
  Transmission Date: 20210419
  Serious: No
  Sender: FDA-Public Use
  Company Number: US-EXELIXIS-CABO-20030705

PATIENT
  Sex: Female

DRUGS (2)
  1. CABOMETYX [Suspect]
     Active Substance: CABOZANTINIB S-MALATE
     Indication: RENAL CANCER
     Dosage: 40 MG, QD
     Dates: end: 20200709
  2. CABOMETYX [Suspect]
     Active Substance: CABOZANTINIB S-MALATE
     Indication: DYSURIA
     Dosage: 20 MG, QD
     Dates: start: 20200807

REACTIONS (22)
  - Gait disturbance [Not Recovered/Not Resolved]
  - Vision blurred [Unknown]
  - Diarrhoea [Not Recovered/Not Resolved]
  - Decreased appetite [Recovering/Resolving]
  - Feeling abnormal [Not Recovered/Not Resolved]
  - Dry mouth [Unknown]
  - Blood pressure decreased [Recovered/Resolved]
  - Fatigue [Recovering/Resolving]
  - Dyspepsia [Unknown]
  - Malaise [Unknown]
  - Diplopia [Unknown]
  - Blood pressure increased [Recovering/Resolving]
  - Taste disorder [Not Recovered/Not Resolved]
  - Stomatitis [Not Recovered/Not Resolved]
  - Asthenia [Unknown]
  - Muscular weakness [Unknown]
  - Dysphonia [Unknown]
  - Dyspnoea [Unknown]
  - Hypophagia [Unknown]
  - Urinary tract infection [Unknown]
  - Throat irritation [Unknown]
  - Tongue dry [Unknown]
